FAERS Safety Report 24190885 (Version 5)
Quarter: 2025Q2

REPORT INFORMATION
  Report Type: Report from Study
  Country: US (occurrence: US)
  Receive Date: 20240808
  Receipt Date: 20250529
  Transmission Date: 20250717
  Serious: Yes (Congenital Anomaly, Other)
  Sender: ABBVIE
  Company Number: US-ABBVIE-5866409

PATIENT
  Sex: Female

DRUGS (2)
  1. RISANKIZUMAB [Suspect]
     Active Substance: RISANKIZUMAB
     Indication: Maternal exposure timing unspecified
     Route: 064
  2. RISANKIZUMAB [Suspect]
     Active Substance: RISANKIZUMAB
     Route: 063

REACTIONS (3)
  - Congenital hydrocephalus [Unknown]
  - Foetal exposure during pregnancy [Unknown]
  - Exposure via breast milk [Unknown]

NARRATIVE: CASE EVENT DATE: 20240606
